FAERS Safety Report 5761033-6 (Version None)
Quarter: 2008Q2

REPORT INFORMATION
  Report Type: 
  Country: None (occurrence: None)
  Receive Date: 20080606
  Receipt Date: 20070802
  Transmission Date: 20081010
  Serious: No
  Sender: FDA-Public Use
  Company Number: US-ASTRAZENECA-2007UW18618

PATIENT
  Age: 70 Year
  Sex: Male
  Weight: 72.6 kg

DRUGS (4)
  1. PRILOSEC [Suspect]
     Indication: GASTROOESOPHAGEAL REFLUX DISEASE
     Route: 048
  2. DIOVAN [Concomitant]
  3. FLOMAX [Concomitant]
  4. NASONEX [Concomitant]

REACTIONS (4)
  - COUGH [None]
  - DIZZINESS [None]
  - HYPERSENSITIVITY [None]
  - NASAL OEDEMA [None]
